FAERS Safety Report 5531250-9 (Version None)
Quarter: 2007Q4

REPORT INFORMATION
  Report Type: 
  Country: None (occurrence: None)
  Receive Date: 20071127
  Receipt Date: 20071114
  Transmission Date: 20080405
  Serious: Yes (Life-Threatening, Hospitalization)
  Sender: FDA-Public Use
  Company Number: GXKR2007GB09800

PATIENT
  Age: 89 Year
  Sex: Female

DRUGS (4)
  1. CEFUROXIME [Suspect]
     Indication: SEPSIS
     Dosage: 1.5 G, INTRAVENOUS
     Route: 042
     Dates: start: 20070921, end: 20070921
  2. BENDROFLUMETHIAZIDE (BENDROFLUMETHIAZIDE) [Concomitant]
  3. CITALOPRAM HYDROBROMIDE [Concomitant]
  4. FERROUS SULPHATE (FERROUS SULPHATE0 [Concomitant]

REACTIONS (2)
  - ANAEMIA [None]
  - HYPERTENSION [None]
